FAERS Safety Report 18716779 (Version 1)
Quarter: 2021Q1

REPORT INFORMATION
  Report Type: Spontaneous
  Country: US (occurrence: US)
  Receive Date: 20210108
  Receipt Date: 20210108
  Transmission Date: 20210419
  Serious: No
  Sender: FDA-Public Use
  Company Number: US-009507513-2012USA013568

PATIENT
  Age: 45 Year
  Sex: Male

DRUGS (3)
  1. PRINIVIL [Suspect]
     Active Substance: LISINOPRIL
     Indication: PROTEINURIA
     Dosage: 2.5 MILLIGRAM, DAILY
     Route: 048
     Dates: start: 201610
  2. LAXIS (DEXLANSOPRAZOLE) [Concomitant]
     Dosage: 40 MILLIGRAM, DAILY
     Dates: start: 201610
  3. PRINIVIL [Suspect]
     Active Substance: LISINOPRIL
     Dosage: 10 UNK
     Route: 048

REACTIONS (1)
  - Product use in unapproved indication [Unknown]

NARRATIVE: CASE EVENT DATE: 201610
